FAERS Safety Report 12227925 (Version 1)
Quarter: 2016Q2

REPORT INFORMATION
  Report Type: Spontaneous
  Country: US (occurrence: US)
  Receive Date: 20160401
  Receipt Date: 20160401
  Transmission Date: 20160815
  Serious: Yes (Other)
  Sender: FDA-Public Use
  Company Number: US-TEVA-646762USA

PATIENT
  Sex: Male

DRUGS (1)
  1. GLYBURIDE. [Suspect]
     Active Substance: GLYBURIDE
     Indication: TYPE 2 DIABETES MELLITUS

REACTIONS (9)
  - Weight decreased [Unknown]
  - Blood glucose decreased [Unknown]
  - Device failure [Unknown]
  - Wrong technique in product usage process [Unknown]
  - Renal impairment [Unknown]
  - Dental plaque [Unknown]
  - Burning sensation [Unknown]
  - Blood urea increased [Unknown]
  - Gingival bleeding [Unknown]
